FAERS Safety Report 9924874 (Version 2)
Quarter: 2014Q1

REPORT INFORMATION
  Report Type: Spontaneous
  Country: CA (occurrence: CA)
  Receive Date: 20140226
  Receipt Date: 20140226
  Transmission Date: 20141002
  Serious: Yes (Other)
  Sender: FDA-Public Use
  Company Number: CA-ABBVIE-13P-163-1178637-00

PATIENT
  Age: 34 Month
  Sex: Female
  Weight: 17 kg

DRUGS (1)
  1. LEVOTHYROXINE [Suspect]
     Indication: PRODUCT USED FOR UNKNOWN INDICATION
     Dosage: 1.8-4.8 MG ONCE

REACTIONS (1)
  - Accidental exposure to product [Unknown]
